FAERS Safety Report 14853538 (Version 2)
Quarter: 2019Q2

REPORT INFORMATION
  Report Type: Spontaneous
  Country: US (occurrence: US)
  Receive Date: 20180507
  Receipt Date: 20190417
  Transmission Date: 20190711
  Serious: No
  Sender: FDA-Public Use
  Company Number: US-PFIZER INC-2018155348

PATIENT
  Age: 53 Year
  Sex: Male

DRUGS (2)
  1. CHANTIX [Suspect]
     Active Substance: VARENICLINE TARTRATE
     Dosage: UNK, 1X/DAY (20 UNSPECIFIED UNIT)
     Dates: start: 2013, end: 2013
  2. CHANTIX [Suspect]
     Active Substance: VARENICLINE TARTRATE
     Indication: SMOKING CESSATION THERAPY
     Dosage: UNK, 1X/DAY (20 UNSPECIFIED UNIT)
     Dates: start: 2010, end: 2011

REACTIONS (5)
  - Pre-existing condition improved [Unknown]
  - Therapeutic response unexpected [Unknown]
  - Intentional product misuse [Unknown]
  - Weight increased [Unknown]
  - Abdominal distension [Unknown]
